FAERS Safety Report 4553212-0 (Version None)
Quarter: 2005Q1

REPORT INFORMATION
  Report Type: 
  Country: None (occurrence: None)
  Receive Date: 20050113
  Receipt Date: 20041018
  Transmission Date: 20050727
  Serious: Yes (Hospitalization)
  Sender: FDA-Public Use
  Company Number: 6011162

PATIENT
  Age: 75 Year
  Sex: Male

DRUGS (2)
  1. LEVOTHYROXINE SODIUM [Suspect]
     Indication: HYPOTHYROIDISM
     Dosage: 1,00 DOSAGE, ORAL
     Route: 048
     Dates: start: 20040815
  2. ISOSORBIDE MONONITRATE [Suspect]
     Indication: DRUG USE FOR UNKNOWN INDICATION
     Dosage: 1,00 DOSAGE, ORAL
     Route: 048
     Dates: start: 20040715

REACTIONS (2)
  - GANGRENE [None]
  - NECROSIS ISCHAEMIC [None]
